FAERS Safety Report 18807125 (Version 1)
Quarter: 2021Q1

REPORT INFORMATION
  Report Type: Spontaneous
  Country: CA (occurrence: CA)
  Receive Date: 20210129
  Receipt Date: 20210129
  Transmission Date: 20210419
  Serious: Yes (Other)
  Sender: FDA-Public Use
  Company Number: CA-PFIZER INC-2021057941

PATIENT
  Sex: Female

DRUGS (1)
  1. PREMARIN [Suspect]
     Active Substance: ESTROGENS, CONJUGATED
     Indication: VAGINAL DISORDER
     Dosage: UNK, DAILY (EVERY DAY FOR A COUPLE WEEKS THEN STOPS THEN EVERY 2ND DAY)

REACTIONS (2)
  - Gastrointestinal disorder [Unknown]
  - Off label use [Unknown]
